FAERS Safety Report 8019041-0 (Version None)
Quarter: 2012Q1

REPORT INFORMATION
  Report Type: 
  Country: None (occurrence: None)
  Receive Date: 20120103
  Receipt Date: 20111221
  Transmission Date: 20120608
  Serious: Yes (Congenital Anomaly)
  Sender: FDA-Public Use
  Company Number: US-ELI_LILLY_AND_COMPANY-US201112006703

PATIENT

DRUGS (1)
  1. PROZAC [Suspect]
     Route: 064

REACTIONS (2)
  - CONGENITAL PULMONARY ARTERY ANOMALY [None]
  - FOETAL EXPOSURE DURING PREGNANCY [None]
